FAERS Safety Report 7155890-9 (Version None)
Quarter: 2010Q4

REPORT INFORMATION
  Report Type: 
  Country: None (occurrence: None)
  Receive Date: 20101214
  Receipt Date: 20101203
  Transmission Date: 20110411
  Serious: Yes (Death, Other)
  Sender: FDA-Public Use
  Company Number: JP-BRISTOL-MYERS SQUIBB COMPANY-15427172

PATIENT
  Age: 58 Year
  Sex: Male

DRUGS (6)
  1. VEPESID [Suspect]
     Indication: T-CELL LYMPHOMA STAGE IV
     Route: 041
     Dates: start: 20090125
  2. IFOMIDE [Suspect]
     Indication: T-CELL LYMPHOMA
     Dosage: FORMULATION IS INJECTION
     Dates: start: 20090125
  3. CARBOPLATIN [Suspect]
     Indication: T-CELL LYMPHOMA
     Dosage: FORMULATION IS INJECTION.
  4. LEUNASE [Suspect]
     Indication: T-CELL LYMPHOMA
     Dosage: FORMULATION IS INJECTION.
     Dates: start: 20090125
  5. DEXAMETHASONE [Suspect]
     Indication: T-CELL LYMPHOMA
     Dates: start: 20090125
  6. METHOTREXATE [Suspect]
     Indication: T-CELL LYMPHOMA
     Dates: start: 20090125

REACTIONS (4)
  - BACTERAEMIA [None]
  - BONE MARROW FAILURE [None]
  - DISSEMINATED INTRAVASCULAR COAGULATION [None]
  - HISTIOCYTOSIS HAEMATOPHAGIC [None]
